FAERS Safety Report 5306156-0 (Version None)
Quarter: 2007Q2

REPORT INFORMATION
  Report Type: 
  Country: None (occurrence: None)
  Receive Date: 20070424
  Receipt Date: 20070413
  Transmission Date: 20071010
  Serious: Yes (Other)
  Sender: FDA-Public Use
  Company Number: PHEH2007US05441

PATIENT
  Age: 71 Year
  Sex: Female

DRUGS (1)
  1. ZELNORM [Suspect]
     Indication: IRRITABLE BOWEL SYNDROME
     Dosage: 6 MG, QD
     Route: 048
     Dates: start: 20060101, end: 20070413

REACTIONS (5)
  - ABASIA [None]
  - APHASIA [None]
  - DIZZINESS [None]
  - EXTRASYSTOLES [None]
  - VITAMIN D DEFICIENCY [None]
